FAERS Safety Report 17436863 (Version 1)
Quarter: 2020Q1

REPORT INFORMATION
  Report Type: Spontaneous
  Country: CN (occurrence: CN)
  Receive Date: 20200219
  Receipt Date: 20200219
  Transmission Date: 20200409
  Serious: Yes (Hospitalization)
  Sender: FDA-Public Use
  Company Number: CN-CELGENEUS-CHN-20200204913

PATIENT
  Age: 31 Year
  Sex: Male
  Weight: 60 kg

DRUGS (6)
  1. CYTARABINE. [Concomitant]
     Active Substance: CYTARABINE
     Indication: ACUTE MYELOID LEUKAEMIA
     Dosage: 0.02 Q12H
     Route: 065
     Dates: start: 20190928
  2. AZACITIDINE. [Suspect]
     Active Substance: AZACITIDINE
     Indication: ACUTE MYELOID LEUKAEMIA
     Dosage: 170 MILLIGRAM
     Route: 058
     Dates: start: 20191207, end: 20191213
  3. G-CSF [Concomitant]
     Active Substance: GRANULOCYTE COLONY-STIMULATING FACTOR NOS
     Indication: ACUTE MYELOID LEUKAEMIA
     Route: 065
     Dates: start: 20190928
  4. AZACITIDINE. [Suspect]
     Active Substance: AZACITIDINE
     Dosage: 170 MILLIGRAM
     Route: 058
     Dates: start: 20190928
  5. ACLARUBICIN [Concomitant]
     Active Substance: ACLARUBICIN
     Indication: ACUTE MYELOID LEUKAEMIA
     Route: 065
     Dates: start: 20190928
  6. HOMOHARRINGTONINE [Concomitant]
     Active Substance: OMACETAXINE MEPESUCCINATE
     Indication: ACUTE MYELOID LEUKAEMIA
     Route: 065
     Dates: start: 20190928

REACTIONS (2)
  - Infection [Recovering/Resolving]
  - Abdominal pain [Recovering/Resolving]

NARRATIVE: CASE EVENT DATE: 20191213
